FAERS Safety Report 24450401 (Version 1)
Quarter: 2024Q4

REPORT INFORMATION
  Report Type: Report from Study
  Country: CA (occurrence: CA)
  Receive Date: 20241017
  Receipt Date: 20241017
  Transmission Date: 20250114
  Serious: Yes (Other)
  Sender: NOVARTIS
  Company Number: CA-002147023-NVSC2024CA202839

PATIENT
  Age: 48 Year
  Sex: Female

DRUGS (1)
  1. LEQVIO [Suspect]
     Active Substance: INCLISIRAN SODIUM
     Indication: Type IIa hyperlipidaemia
     Dosage: 284 MG, OTHER, BASELINE, 3 MONTHS, EVERY 6 MONTHS MOVING FORWARD.
     Route: 058
     Dates: start: 20240926

REACTIONS (2)
  - Angina pectoris [Unknown]
  - Neck pain [Unknown]
